FAERS Safety Report 5337717-0 (Version None)
Quarter: 2007Q2

REPORT INFORMATION
  Report Type: 
  Country: None (occurrence: None)
  Receive Date: 20070315
  Receipt Date: 20060705
  Transmission Date: 20071010
  Serious: Yes (Hospitalization, Other)
  Sender: FDA-Public Use
  Company Number: PHEH2006US01766

PATIENT
  Age: 13 Year
  Sex: Male
  Weight: 42.6 kg

DRUGS (3)
  1. TRILEPTAL [Suspect]
     Indication: ATTENTION DEFICIT/HYPERACTIVITY DISORDER
     Dosage: 300 MG, QD, ORAL
     Route: 048
     Dates: start: 20040201
  2. TRILEPTAL [Suspect]
     Indication: BIPOLAR DISORDER
     Dosage: 300 MG, QD, ORAL
     Route: 048
     Dates: start: 20040201
  3. CONCERTA [Concomitant]

REACTIONS (6)
  - DERMATITIS CONTACT [None]
  - EPISTAXIS [None]
  - HERPES ZOSTER [None]
  - RHINITIS ALLERGIC [None]
  - SKIN LACERATION [None]
  - STEVENS-JOHNSON SYNDROME [None]
